FAERS Safety Report 5780507-5 (Version None)
Quarter: 2008Q2

REPORT INFORMATION
  Report Type: 
  Country: None (occurrence: None)
  Receive Date: 20080620
  Receipt Date: 20080509
  Transmission Date: 20081010
  Serious: No
  Sender: FDA-Public Use
  Company Number: A0727267A

PATIENT
  Age: 46 Year
  Sex: Female

DRUGS (4)
  1. AVANDARYL [Suspect]
     Dosage: 1TAB TWICE PER DAY
     Route: 048
     Dates: start: 20080117
  2. METFORMIN [Concomitant]
  3. CADUET [Concomitant]
  4. ASPIRIN [Concomitant]

REACTIONS (2)
  - JOINT SWELLING [None]
  - WEIGHT INCREASED [None]
